FAERS Safety Report 12058008 (Version 1)
Quarter: 2016Q1

REPORT INFORMATION
  Report Type: Spontaneous
  Country: JP (occurrence: JP)
  Receive Date: 20160210
  Receipt Date: 20160210
  Transmission Date: 20160526
  Serious: Yes (Death, Life-Threatening)
  Sender: FDA-Public Use
  Company Number: JP-ROCHE-1695564

PATIENT
  Age: 61 Year
  Sex: Female
  Weight: 47 kg

DRUGS (10)
  1. LOXOPROFEN [Concomitant]
     Active Substance: LOXOPROFEN
     Indication: PAIN MANAGEMENT
     Route: 065
     Dates: start: 20150206, end: 20151228
  2. OXINORM (JAPAN) [Concomitant]
     Indication: PAIN MANAGEMENT
     Route: 065
     Dates: start: 20150508, end: 20151218
  3. PACLITAXEL. [Concomitant]
     Active Substance: PACLITAXEL
     Indication: BREAST CANCER
     Route: 041
     Dates: start: 20151203, end: 20151210
  4. PENTAZOCINE [Concomitant]
     Active Substance: PENTAZOCINE
     Indication: PAIN MANAGEMENT
     Route: 065
     Dates: start: 20151111, end: 20151228
  5. AVASTIN [Suspect]
     Active Substance: BEVACIZUMAB
     Indication: BREAST CANCER
     Route: 041
     Dates: start: 20151203
  6. NEXIUM [Concomitant]
     Active Substance: ESOMEPRAZOLE MAGNESIUM
     Indication: PROPHYLAXIS
     Route: 048
     Dates: start: 20150206, end: 20151228
  7. LYRICA [Concomitant]
     Active Substance: PREGABALIN
     Indication: PAIN MANAGEMENT
     Route: 065
     Dates: start: 20150710, end: 20151228
  8. FENTOS (JAPAN) [Concomitant]
     Indication: PAIN MANAGEMENT
     Route: 062
     Dates: start: 20151110, end: 20160122
  9. NOVAMIN (JAPAN) [Concomitant]
     Indication: PAIN MANAGEMENT
     Route: 065
     Dates: start: 20151123, end: 20151228
  10. OXYCONTIN [Concomitant]
     Active Substance: OXYCODONE HYDROCHLORIDE
     Indication: PAIN MANAGEMENT
     Route: 065
     Dates: start: 20151016, end: 20151228

REACTIONS (2)
  - Rectal perforation [Recovered/Resolved]
  - Breast cancer [Fatal]

NARRATIVE: CASE EVENT DATE: 20151228
